FAERS Safety Report 19240825 (Version 2)
Quarter: 2021Q2

REPORT INFORMATION
  Report Type: Spontaneous
  Country: GB (occurrence: GB)
  Receive Date: 20210510
  Receipt Date: 20210526
  Transmission Date: 20210717
  Serious: Yes (Hospitalization, Other)
  Sender: FDA-Public Use
  Company Number: GB-PFIZER INC-2021485507

PATIENT
  Age: 68 Year
  Sex: Female

DRUGS (5)
  1. ASTRAZENECA COVID?19 VACCINE [Suspect]
     Active Substance: AZD-1222
     Indication: COVID-19 IMMUNISATION
     Dosage: DOSE 1
     Dates: start: 20210204, end: 20210204
  2. BOSUTINIB [Suspect]
     Active Substance: BOSUTINIB
     Indication: CHRONIC MYELOID LEUKAEMIA
     Dosage: UNK
     Dates: start: 20210201, end: 20210216
  3. DASATINIB. [Concomitant]
     Active Substance: DASATINIB
     Dosage: UNK
     Dates: start: 202001, end: 202010
  4. BOSUTINIB [Suspect]
     Active Substance: BOSUTINIB
     Indication: STEM CELL TRANSPLANT
     Dosage: UNK
     Dates: start: 20210331
  5. NILOTINIB [Concomitant]
     Active Substance: NILOTINIB
     Dosage: UNK
     Dates: start: 20201026, end: 202101

REACTIONS (5)
  - Blood blister [Recovered/Resolved]
  - Immune thrombocytopenia [Recovered/Resolved]
  - Hypothyroidism [Recovered/Resolved]
  - Conjunctival haemorrhage [Recovered/Resolved]
  - Petechiae [Recovered/Resolved]

NARRATIVE: CASE EVENT DATE: 20210217
